FAERS Safety Report 5639983-0 (Version None)
Quarter: 2008Q1

REPORT INFORMATION
  Report Type: 
  Country: None (occurrence: None)
  Receive Date: 20080227
  Receipt Date: 20080207
  Transmission Date: 20080703
  Serious: No
  Sender: FDA-Public Use
  Company Number: US-BAYER-200813508NA

PATIENT
  Age: 48 Year
  Sex: Female
  Weight: 66 kg

DRUGS (1)
  1. YAZ [Suspect]
     Indication: MENSTRUAL DISORDER
     Route: 048
     Dates: start: 20071001

REACTIONS (2)
  - HEADACHE [None]
  - MUSCLE SPASMS [None]
